FAERS Safety Report 9288648 (Version 1)
Quarter: 2013Q2

REPORT INFORMATION
  Report Type: Spontaneous
  Country: FR (occurrence: FR)
  Receive Date: 20130514
  Receipt Date: 20130514
  Transmission Date: 20140414
  Serious: Yes (Hospitalization)
  Sender: FDA-Public Use
  Company Number: FR-JNJFOC-20130501761

PATIENT
  Age: 61 Year
  Sex: Female

DRUGS (4)
  1. DOXORUBICIN HYDROCHLORIDE (CAELYX) [Suspect]
     Indication: BREAST CANCER
     Route: 042
     Dates: start: 20130326, end: 20130326
  2. CARBOPLATINE [Suspect]
     Indication: BREAST CANCER
     Route: 042
     Dates: start: 20130326, end: 20130326
  3. KYTRIL [Concomitant]
     Indication: PREMEDICATION
     Dosage: 3MG/3ML
     Route: 042
     Dates: start: 20130326, end: 20130326
  4. METHYLPREDNISOLONE [Concomitant]
     Indication: PREMEDICATION
     Dosage: 3MG/3ML
     Route: 065
     Dates: start: 20130326, end: 20130326

REACTIONS (4)
  - Infusion site reaction [Recovered/Resolved]
  - Pruritus [Recovered/Resolved]
  - Erythema [Recovered/Resolved]
  - Feeling hot [Recovered/Resolved]
